FAERS Safety Report 12310790 (Version 1)
Quarter: 2016Q2

REPORT INFORMATION
  Report Type: Report from Study
  Country: EC (occurrence: EC)
  Receive Date: 20160427
  Receipt Date: 20160427
  Transmission Date: 20160815
  Serious: Yes (Other)
  Sender: FDA-Public Use
  Company Number: PHHY2016EC043378

PATIENT
  Age: 82 Year

DRUGS (2)
  1. TASIGNA [Suspect]
     Active Substance: NILOTINIB
     Dosage: 400 MG, BID
     Route: 048
     Dates: start: 20160127, end: 20160320
  2. TASIGNA [Suspect]
     Active Substance: NILOTINIB
     Indication: CHRONIC MYELOID LEUKAEMIA
     Dosage: 600 MG (400 MG IN THE MORNING AND 200 MG AT NIGHT), QD
     Route: 048
     Dates: start: 20151221, end: 20160126

REACTIONS (2)
  - Anaemia [Not Recovered/Not Resolved]
  - Myelofibrosis [Unknown]

NARRATIVE: CASE EVENT DATE: 20160330
